FAERS Safety Report 10262150 (Version 1)
Quarter: 2014Q2

REPORT INFORMATION
  Report Type: Spontaneous
  Country: US (occurrence: US)
  Receive Date: 20140626
  Receipt Date: 20140626
  Transmission Date: 20141212
  Serious: Yes (Hospitalization)
  Sender: FDA-Public Use
  Company Number: US-GLAXOSMITHKLINE-A1078486A

PATIENT
  Age: 45 Year
  Sex: Female

DRUGS (2)
  1. ADVAIR HFA [Suspect]
     Indication: ASTHMA
     Route: 065
     Dates: start: 20130509
  2. VENTOLIN HFA [Suspect]
     Indication: PRODUCT USED FOR UNKNOWN INDICATION
     Route: 065
     Dates: start: 20130508

REACTIONS (2)
  - Asthma [Unknown]
  - Drug dose omission [Unknown]
